FAERS Safety Report 19879532 (Version 3)
Quarter: 2021Q4

REPORT INFORMATION
  Report Type: Spontaneous
  Country: US (occurrence: US)
  Receive Date: 20210924
  Receipt Date: 20211015
  Transmission Date: 20220303
  Serious: No
  Sender: FDA-Public Use
  Company Number: US-MYLANLABS-2021M1064888

PATIENT
  Sex: Female
  Weight: 99 kg

DRUGS (2)
  1. GLATIRAMER ACETATE [Suspect]
     Active Substance: GLATIRAMER ACETATE
     Indication: Product used for unknown indication
     Dosage: 40 MILLIGRAM, 3XW
     Route: 058
  2. DEVICE [Suspect]
     Active Substance: DEVICE
     Indication: Product used for unknown indication
     Dosage: UNK

REACTIONS (7)
  - Pharyngeal swelling [Unknown]
  - Swelling face [Unknown]
  - Urticaria [Unknown]
  - Injection site pain [Unknown]
  - Syringe issue [Unknown]
  - Device use issue [Unknown]
  - Product use issue [Unknown]
